FAERS Safety Report 16382132 (Version 1)
Quarter: 2019Q2

REPORT INFORMATION
  Report Type: Spontaneous
  Country: US (occurrence: US)
  Receive Date: 20190425
  Receipt Date: 20190425
  Transmission Date: 20190711
  Serious: Yes (Hospitalization)
  Sender: FDA-Public Use
  Company Number: None

PATIENT
  Age: 73 Year
  Sex: Female

DRUGS (26)
  1. MULTI VIT [Concomitant]
     Active Substance: VITAMINS
  2. ROSUBASTATIN [Concomitant]
  3. TOLTERODINE [Concomitant]
     Active Substance: TOLTERODINE
  4. LEVOTHYROXIN [Concomitant]
     Active Substance: LEVOTHYROXINE
  5. CEPHALEXIN. [Concomitant]
     Active Substance: CEPHALEXIN
  6. GABAPENTIN. [Concomitant]
     Active Substance: GABAPENTIN
  7. LEFLUNOMIDE. [Concomitant]
     Active Substance: LEFLUNOMIDE
  8. METOPROLOL TARTRATE. [Concomitant]
     Active Substance: METOPROLOL TARTRATE
  9. ATORVASTATIN [Concomitant]
     Active Substance: ATORVASTATIN
  10. OXYBUTYNIN. [Concomitant]
     Active Substance: OXYBUTYNIN CHLORIDE
  11. RANITIDINE. [Concomitant]
     Active Substance: RANITIDINE
  12. VIT D3/VIT C [Concomitant]
  13. ORENCIA [Suspect]
     Active Substance: ABATACEPT
     Indication: RHEUMATOID ARTHRITIS
     Route: 058
     Dates: start: 201112
  14. BIOTIN [Concomitant]
     Active Substance: BIOTIN
  15. CYMBALTA [Concomitant]
     Active Substance: DULOXETINE HYDROCHLORIDE
  16. HYDROCO/APAP [Concomitant]
     Active Substance: ACETAMINOPHEN\HYDROCODONE
  17. DULOXETINE. [Concomitant]
     Active Substance: DULOXETINE
  18. HYDROXYCHLOR [Concomitant]
     Active Substance: HYDROXYCHLOROQUINE
  19. JANUVIA [Concomitant]
     Active Substance: SITAGLIPTIN PHOSPHATE
  20. MYRBETRIQ [Concomitant]
     Active Substance: MIRABEGRON
  21. ELIQUIES [Concomitant]
  22. FUROSEMIDE. [Concomitant]
     Active Substance: FUROSEMIDE
  23. MAGNESIUM [Concomitant]
     Active Substance: MAGNESIUM
  24. NEXIUM [Concomitant]
     Active Substance: ESOMEPRAZOLE MAGNESIUM
  25. VALACYCLOVIR [Concomitant]
     Active Substance: VALACYCLOVIR HYDROCHLORIDE
  26. VICODIN [Concomitant]
     Active Substance: ACETAMINOPHEN\HYDROCODONE BITARTRATE

REACTIONS (6)
  - Fall [None]
  - Ankle fracture [None]
  - Dysphonia [None]
  - Post procedural complication [None]
  - Knee arthroplasty [None]
  - Therapy cessation [None]

NARRATIVE: CASE EVENT DATE: 2019
